FAERS Safety Report 8895406 (Version 1)
Quarter: 2012Q4

REPORT INFORMATION
  Report Type: Report from Study
  Country: CA (occurrence: CA)
  Receive Date: 20121108
  Receipt Date: 20121108
  Transmission Date: 20130627
  Serious: Yes (Other)
  Sender: FDA-Public Use
  Company Number: CA-JNJFOC-20121017285

PATIENT
  Sex: Male
  Weight: 94.2 kg

DRUGS (1)
  1. REMICADE [Suspect]
     Indication: PSORIATIC ARTHROPATHY
     Dosage: stop Date: 17-JUL (year unspecified)
     Route: 042
     Dates: start: 200602

REACTIONS (1)
  - Cerebrovascular accident [Unknown]
